FAERS Safety Report 9447867 (Version 3)
Quarter: 2014Q2

REPORT INFORMATION
  Report Type: Report from Study
  Country: CA (occurrence: CA)
  Receive Date: 20130808
  Receipt Date: 20140428
  Transmission Date: 20141212
  Serious: Yes (Other)
  Sender: FDA-Public Use
  Company Number: CA-BRISTOL-MYERS SQUIBB COMPANY-17104035

PATIENT
  Age: 67 Year
  Sex: Male
  Weight: 59 kg

DRUGS (5)
  1. ORENCIA [Suspect]
     Indication: RHEUMATOID ARTHRITIS
     Dosage: INF 18?3A77129-EXPJUL15?SEP2015?EXPJUL16 DOSE=750 UNITS, INF 16JAN14 CANCELLED?3F76196,EXP MAR16
     Route: 042
     Dates: start: 20110718
  2. METHOTREXATE [Concomitant]
  3. APO-FOLIC [Concomitant]
  4. PREDNISONE [Concomitant]
  5. VITAMIN B12 [Concomitant]

REACTIONS (9)
  - Pneumonia [Unknown]
  - Eye infection [Unknown]
  - Thrombophlebitis [Unknown]
  - Hand fracture [Unknown]
  - Chills [Recovered/Resolved]
  - Arthralgia [Not Recovered/Not Resolved]
  - Peripheral swelling [Not Recovered/Not Resolved]
  - Infusion site pain [Recovered/Resolved]
  - Nasopharyngitis [Not Recovered/Not Resolved]
